FAERS Safety Report 23002359 (Version 2)
Quarter: 2023Q4

REPORT INFORMATION
  Report Type: Spontaneous
  Country: US (occurrence: US)
  Receive Date: 20230928
  Receipt Date: 20231109
  Transmission Date: 20240110
  Serious: Yes (Other)
  Sender: FDA-Public Use
  Company Number: US-TEVA-2023-US-2928847

PATIENT
  Age: 43 Year
  Sex: Male
  Weight: 99.79 kg

DRUGS (4)
  1. UZEDY [Suspect]
     Active Substance: RISPERIDONE
     Indication: Bipolar disorder
     Dosage: ONCE MONTHLY DOSE
     Route: 065
     Dates: start: 20230815
  2. RISPERIDONE [Suspect]
     Active Substance: RISPERIDONE
     Indication: Product used for unknown indication
     Dosage: 10 MG
     Route: 048
  3. BUSPIRONE [Concomitant]
     Active Substance: BUSPIRONE HYDROCHLORIDE
     Indication: Product used for unknown indication
     Dosage: 10 MG
     Route: 065
  4. DULOXETINE [Concomitant]
     Active Substance: DULOXETINE
     Indication: Product used for unknown indication
     Dosage: 15 MG
     Route: 065

REACTIONS (11)
  - Lyme disease [Unknown]
  - Vision blurred [Unknown]
  - Agitation [Unknown]
  - Hypoaesthesia [Unknown]
  - Sitting disability [Unknown]
  - Loss of personal independence in daily activities [Unknown]
  - Fatigue [Unknown]
  - Head discomfort [Unknown]
  - Product prescribing issue [Unknown]
  - Drug intolerance [Unknown]
  - Product use in unapproved indication [Unknown]
